FAERS Safety Report 6305793-4 (Version None)
Quarter: 2009Q3

REPORT INFORMATION
  Report Type: 
  Country: None (occurrence: None)
  Receive Date: 20090812
  Receipt Date: 20070530
  Transmission Date: 20100115
  Serious: Yes (Hospitalization, Other)
  Sender: FDA-Public Use
  Company Number: US-ASTRAZENECA-2006UW23641

PATIENT
  Age: 516 Month
  Sex: Male
  Weight: 99.3 kg

DRUGS (18)
  1. SEROQUEL [Suspect]
     Indication: BIPOLAR DISORDER
     Route: 048
     Dates: start: 20030101, end: 20050301
  2. SEROQUEL [Suspect]
     Indication: SLEEP DISORDER
     Route: 048
     Dates: start: 20030101, end: 20050301
  3. SEROQUEL [Suspect]
     Indication: AFFECTIVE DISORDER
     Route: 048
     Dates: start: 20030101, end: 20050301
  4. SEROQUEL [Suspect]
     Indication: POST-TRAUMATIC STRESS DISORDER
     Route: 048
     Dates: start: 20030101, end: 20050301
  5. SEROQUEL [Suspect]
     Dosage: 75 MG - 600 MG
     Route: 048
     Dates: start: 20040514
  6. SEROQUEL [Suspect]
     Dosage: 75 MG - 600 MG
     Route: 048
     Dates: start: 20040514
  7. SEROQUEL [Suspect]
     Dosage: 75 MG - 600 MG
     Route: 048
     Dates: start: 20040514
  8. SEROQUEL [Suspect]
     Dosage: 75 MG - 600 MG
     Route: 048
     Dates: start: 20040514
  9. OLANZAPINE [Concomitant]
     Dates: start: 20010101
  10. DEPAKOTE [Concomitant]
     Route: 048
  11. RAMIPRIL [Concomitant]
     Route: 048
     Dates: start: 20080407
  12. WELLBUTRIN [Concomitant]
     Route: 048
     Dates: start: 20040106
  13. ACTOS [Concomitant]
     Route: 048
     Dates: start: 20050102
  14. TRICOR [Concomitant]
     Route: 048
     Dates: start: 20050102
  15. SERZONE [Concomitant]
     Dates: start: 20000328
  16. BUSPAR [Concomitant]
     Dates: start: 20060105
  17. TRAZODONE HCL [Concomitant]
     Dates: start: 20060105
  18. LIPITOR [Concomitant]
     Dates: start: 20050102

REACTIONS (12)
  - BLOOD ALKALINE PHOSPHATASE INCREASED [None]
  - BLOOD CHOLESTEROL INCREASED [None]
  - BLOOD CREATININE INCREASED [None]
  - BLOOD GLUCOSE DECREASED [None]
  - BLOOD TRIGLYCERIDES INCREASED [None]
  - BLOOD UREA INCREASED [None]
  - DIABETES MELLITUS [None]
  - DIABETES WITH HYPEROSMOLARITY [None]
  - HYPERGLYCAEMIC HYPEROSMOLAR NONKETOTIC SYNDROME [None]
  - INJURY [None]
  - PANCREATITIS [None]
  - TYPE 1 DIABETES MELLITUS [None]
